FAERS Safety Report 17162675 (Version 1)
Quarter: 2019Q4

REPORT INFORMATION
  Report Type: Spontaneous
  Country: US (occurrence: US)
  Receive Date: 20191216
  Receipt Date: 20191216
  Transmission Date: 20200122
  Serious: Yes (Hospitalization)
  Sender: FDA-Public Use
  Company Number: None

PATIENT
  Age: 56 Year
  Sex: Female

DRUGS (14)
  1. PROPRANOLOL [Concomitant]
     Active Substance: PROPRANOLOL HYDROCHLORIDE
  2. A-HYDROCORT [Concomitant]
     Active Substance: HYDROCORTISONE SODIUM SUCCINATE
  3. SERTRALINE [Concomitant]
     Active Substance: SERTRALINE HYDROCHLORIDE
  4. LAMOTRIGINE. [Concomitant]
     Active Substance: LAMOTRIGINE
  5. LOSARTAN. [Concomitant]
     Active Substance: LOSARTAN
  6. ZOLPIDEM [Concomitant]
     Active Substance: ZOLPIDEM TARTRATE
  7. DIAZEPAM. [Concomitant]
     Active Substance: DIAZEPAM
  8. LEVOTHYROXIN [Concomitant]
     Active Substance: LEVOTHYROXINE
  9. POT CL [Concomitant]
  10. AUSTEDO [Suspect]
     Active Substance: DEUTETRABENAZINE
     Indication: ADRENOCORTICAL INSUFFICIENCY ACUTE
     Route: 048
     Dates: start: 20181123
  11. ACETAZOLAMID [Concomitant]
     Active Substance: ACETAZOLAMIDE
  12. FLUTICASONE. [Concomitant]
     Active Substance: FLUTICASONE
  13. BUT/APAP/CAF [Concomitant]
  14. TOPIRAMATE. [Concomitant]
     Active Substance: TOPIRAMATE

REACTIONS (1)
  - Migraine [None]

NARRATIVE: CASE EVENT DATE: 20191024
